FAERS Safety Report 7301539-1 (Version None)
Quarter: 2011Q1

REPORT INFORMATION
  Report Type: 
  Country: None (occurrence: None)
  Receive Date: 20110208
  Receipt Date: 20110127
  Transmission Date: 20110831
  Serious: Yes (Hospitalization, Other)
  Sender: FDA-Public Use
  Company Number: WAES 1012USA02839

PATIENT
  Age: 75 Year
  Sex: Female

DRUGS (7)
  1. RIVASA [Concomitant]
  2. ZOCOR [Suspect]
     Indication: ACUTE CORONARY SYNDROME
     Dosage: PO
     Route: 048
     Dates: start: 20060914
  3. NEXIUM [Concomitant]
  4. PLACEBO [Suspect]
     Indication: ACUTE CORONARY SYNDROME
     Dosage: PO
     Route: 048
     Dates: start: 20060914
  5. ADALAT CC [Concomitant]
  6. PLACEBO [Suspect]
     Indication: ACUTE CORONARY SYNDROME
     Dosage: PO
     Route: 048
     Dates: start: 20060914
  7. TENORMIN [Concomitant]

REACTIONS (4)
  - HYPOKALAEMIA [None]
  - CHOLECYSTITIS ACUTE [None]
  - ATRIAL FLUTTER [None]
  - GASTROINTESTINAL TRACT ADENOMA [None]
